FAERS Safety Report 20923366 (Version 1)
Quarter: 2022Q2

REPORT INFORMATION
  Report Type: Spontaneous
  Country: US (occurrence: US)
  Receive Date: 20220607
  Receipt Date: 20220607
  Transmission Date: 20220721
  Serious: Yes (Hospitalization)
  Sender: FDA-Public Use
  Company Number: US-STRIDES ARCOLAB LIMITED-2022SP002927

PATIENT
  Age: 82 Year
  Sex: Female

DRUGS (1)
  1. PREDNISOLONE [Suspect]
     Active Substance: PREDNISOLONE
     Indication: Hypersensitivity pneumonitis
     Dosage: 40 MILLIGRAM EVERY DAY
     Route: 065

REACTIONS (2)
  - Legionella infection [Unknown]
  - Lung abscess [Unknown]
